FAERS Safety Report 17102265 (Version 2)
Quarter: 2019Q4

REPORT INFORMATION
  Report Type: Spontaneous
  Country: US (occurrence: US)
  Receive Date: 20191202
  Receipt Date: 20191223
  Transmission Date: 20200122
  Serious: Yes (Other)
  Sender: FDA-Public Use
  Company Number: US-JNJFOC-20191133178

PATIENT
  Sex: Female

DRUGS (3)
  1. DURAGESIC [Suspect]
     Active Substance: FENTANYL
     Indication: PAIN
     Dosage: 50 MCG
     Route: 062
     Dates: start: 1996, end: 1999
  2. DURAGESIC [Suspect]
     Active Substance: FENTANYL
     Dosage: 125 MCG
     Route: 062
     Dates: start: 1999, end: 1999
  3. DURAGESIC [Suspect]
     Active Substance: FENTANYL
     Dosage: 175 MCG
     Route: 062
     Dates: start: 1999, end: 2000

REACTIONS (5)
  - Cardiac failure congestive [Not Recovered/Not Resolved]
  - Seizure [Not Recovered/Not Resolved]
  - Drug ineffective [Unknown]
  - Nausea [Unknown]
  - Product adhesion issue [Unknown]

NARRATIVE: CASE EVENT DATE: 1996
